FAERS Safety Report 21008989 (Version 1)
Quarter: 2022Q2

REPORT INFORMATION
  Report Type: Spontaneous
  Country: JP (occurrence: JP)
  Receive Date: 20220627
  Receipt Date: 20220627
  Transmission Date: 20220721
  Serious: Yes (Other)
  Sender: FDA-Public Use
  Company Number: JP-BAYER-2022A085835

PATIENT
  Sex: Male

DRUGS (1)
  1. EYLEA [Suspect]
     Active Substance: AFLIBERCEPT
     Indication: Product used for unknown indication
     Dosage: TOTAL 3 TIMES; SOLUTION FOR INJECTION IN PRE-FILLED SYRINGE

REACTIONS (3)
  - Blindness [Unknown]
  - Injection site pain [Unknown]
  - Vision blurred [Unknown]
